FAERS Safety Report 26007769 (Version 1)
Quarter: 2025Q4

REPORT INFORMATION
  Report Type: Spontaneous
  Country: EU (occurrence: None)
  Receive Date: 20251106
  Receipt Date: 20251106
  Transmission Date: 20260118
  Serious: Yes (Other)
  Sender: UCB
  Company Number: EU-UCBSA-2025068866

PATIENT
  Age: 35 Year

DRUGS (3)
  1. LEVETIRACETAM [Suspect]
     Active Substance: LEVETIRACETAM
     Indication: Epilepsy
     Dosage: 1000 MILLIGRAM, 2X/DAY (BID)
  2. DIAZEPAM [Concomitant]
     Active Substance: DIAZEPAM
     Indication: Epilepsy
     Dosage: 10 MG IV+100 FO
  3. BRIVARACETAM [Concomitant]
     Active Substance: BRIVARACETAM
     Indication: Epilepsy
     Dosage: 100 MG IV IN BOLUS - CLINICAL TWITCHES OF THE RIGHT EXTREMITIES + 100 MG AFTER 15 MINUTES:

REACTIONS (6)
  - Seizure [Unknown]
  - Generalised tonic-clonic seizure [Unknown]
  - Depressive symptom [Unknown]
  - Paraesthesia [Unknown]
  - Muscle twitching [Unknown]
  - Disturbance in attention [Unknown]
